FAERS Safety Report 5411971-9 (Version None)
Quarter: 2007Q3

REPORT INFORMATION
  Report Type: 
  Country: None (occurrence: None)
  Receive Date: 20070810
  Receipt Date: 20070810
  Transmission Date: 20080115
  Serious: No
  Sender: FDA-Public Use
  Company Number: None

PATIENT
  Age: 25 Month
  Sex: Female
  Weight: 56 kg

DRUGS (1)
  1. DAONIL 10 MG AVENTIS [Suspect]
     Indication: DIABETES MELLITUS
     Dosage: 10 MG 2 A DAY PO
     Route: 048
     Dates: start: 20070725, end: 20070730

REACTIONS (1)
  - NAUSEA [None]
